FAERS Safety Report 6026392-8 (Version None)
Quarter: 2009Q1

REPORT INFORMATION
  Report Type: 
  Country: None (occurrence: None)
  Receive Date: 20090102
  Receipt Date: 20081229
  Transmission Date: 20090719
  Serious: Yes (Life-Threatening, Hospitalization, Disabling, Other)
  Sender: FDA-Public Use
  Company Number: PHEH2008US11381

PATIENT
  Sex: Female
  Weight: 112.2 kg

DRUGS (14)
  1. IMATINIB MESYLATE [Suspect]
     Indication: CHRONIC MYELOID LEUKAEMIA
     Dosage: 400 MG, QD
     Route: 048
     Dates: start: 20080811
  2. INSULIN [Concomitant]
  3. LASIX [Concomitant]
  4. LEVOXYL [Concomitant]
     Indication: HYPOTHYROIDISM
     Dosage: 0.088 MG, QD
  5. AMARYL [Concomitant]
     Indication: DIABETES MELLITUS
     Dosage: 4 MG, BID
  6. ACTOS [Concomitant]
     Indication: DIABETES MELLITUS
     Dosage: 30 MG, QD
  7. LISINOPRIL [Concomitant]
     Dosage: 20 MG, QD
  8. IRON [Concomitant]
     Dosage: 325 MG, QD
  9. IBUPROFEN TABLETS [Concomitant]
  10. LUTEIN [Concomitant]
  11. ACETAMINOPHEN [Concomitant]
     Dosage: 500 MG, QD
  12. LANTUS [Concomitant]
     Indication: DIABETES MELLITUS
     Route: 058
  13. FUROSEMIDE [Concomitant]
     Indication: FLUID RETENTION
     Dosage: 60 MG, QD
     Route: 048
  14. IBUPROFEN TABLETS [Concomitant]
     Indication: ARTHRALGIA
     Dosage: 200 MG, PRN

REACTIONS (10)
  - BIOPSY ENDOMETRIUM ABNORMAL [None]
  - COMPUTERISED TOMOGRAM ABNORMAL [None]
  - ENDOMETRIAL CANCER STAGE III [None]
  - GENITAL HAEMORRHAGE [None]
  - HYSTERECTOMY [None]
  - LYMPHADENECTOMY [None]
  - LYMPHADENOPATHY [None]
  - METASTASES TO LYMPH NODES [None]
  - SALPINGO-OOPHORECTOMY BILATERAL [None]
  - UTERINE ENLARGEMENT [None]
